FAERS Safety Report 8473886-1 (Version None)
Quarter: 2012Q2

REPORT INFORMATION
  Report Type: 
  Country: None (occurrence: None)
  Receive Date: 20120628
  Receipt Date: 20120203
  Transmission Date: 20120825
  Serious: Yes (Other)
  Sender: FDA-Public Use
  Company Number: US-MYLANLABS-2012S1001072

PATIENT
  Age: 29 Year
  Sex: Female
  Weight: 146.06 kg

DRUGS (6)
  1. CLOZAPINE [Suspect]
     Route: 048
     Dates: end: 20120110
  2. TRAZODONE CAPSULES 50 MG [Concomitant]
     Dates: start: 20080101
  3. ARTANE [Concomitant]
     Indication: DROOLING
     Dates: start: 20110908
  4. CLONAZEPAM [Concomitant]
  5. LITHIUM CARBONATE [Concomitant]
     Dates: start: 20090101
  6. CLOZAPINE [Suspect]
     Route: 048
     Dates: start: 20100831

REACTIONS (1)
  - LEUKOPENIA [None]
